FAERS Safety Report 6544752-3 (Version None)
Quarter: 2010Q1

REPORT INFORMATION
  Report Type: 
  Country: None (occurrence: None)
  Receive Date: 20100121
  Receipt Date: 20100118
  Transmission Date: 20100710
  Serious: Yes (Hospitalization, Other)
  Sender: FDA-Public Use
  Company Number: US-BAYER-201010667BCC

PATIENT
  Age: 86 Year
  Sex: Male

DRUGS (2)
  1. ALEVE (CAPLET) [Suspect]
     Indication: DRUG USE FOR UNKNOWN INDICATION
     Route: 048
  2. REVLIMID [Suspect]
     Indication: MULTIPLE MYELOMA
     Dosage: UNIT DOSE: 10 MG
     Route: 065
     Dates: start: 20091001

REACTIONS (3)
  - DECREASED APPETITE [None]
  - HYPOVOLAEMIA [None]
  - TUBULOINTERSTITIAL NEPHRITIS [None]
